FAERS Safety Report 21926942 (Version 9)
Quarter: 2025Q2

REPORT INFORMATION
  Report Type: Spontaneous
  Country: JP (occurrence: JP)
  Receive Date: 20230130
  Receipt Date: 20250616
  Transmission Date: 20250717
  Serious: Yes (Death, Hospitalization, Other)
  Sender: BRISTOL-MYERS SQUIBB COMPANY
  Company Number: JP-ONO-2023JP002007

PATIENT
  Age: 59 Year
  Sex: Female

DRUGS (8)
  1. OPDIVO [Suspect]
     Active Substance: NIVOLUMAB
     Indication: Gastric cancer
     Route: 041
     Dates: start: 20220803
  2. OPDIVO [Suspect]
     Active Substance: NIVOLUMAB
     Route: 041
  3. GIMERACIL\OTERACIL\TEGAFUR [Concomitant]
     Active Substance: GIMERACIL\OTERACIL POTASSIUM\TEGAFUR
     Indication: Gastric cancer
     Dates: start: 202208
  4. GIMERACIL\OTERACIL\TEGAFUR [Concomitant]
     Active Substance: GIMERACIL\OTERACIL POTASSIUM\TEGAFUR
     Dates: start: 202211
  5. GIMERACIL\OTERACIL\TEGAFUR [Concomitant]
     Active Substance: GIMERACIL\OTERACIL POTASSIUM\TEGAFUR
     Dates: start: 202305
  6. OXALIPLATIN [Concomitant]
     Active Substance: OXALIPLATIN
     Indication: Gastric cancer
     Dates: start: 20220803
  7. OXALIPLATIN [Concomitant]
     Active Substance: OXALIPLATIN
     Dates: start: 202211
  8. OXALIPLATIN [Concomitant]
     Active Substance: OXALIPLATIN
     Dates: start: 202305

REACTIONS (9)
  - Cystitis haemorrhagic [Recovering/Resolving]
  - Diarrhoea [Recovering/Resolving]
  - Immune-mediated arthritis [Recovering/Resolving]
  - Immune-mediated enterocolitis [Recovering/Resolving]
  - Immune-mediated dermatitis [Recovered/Resolved]
  - Malaise [Unknown]
  - Decreased appetite [Unknown]
  - Death [Fatal]
  - Polyarthritis [Recovering/Resolving]

NARRATIVE: CASE EVENT DATE: 20221101
